FAERS Safety Report 8018451-5 (Version None)
Quarter: 2012Q1

REPORT INFORMATION
  Report Type: 
  Country: None (occurrence: None)
  Receive Date: 20120103
  Receipt Date: 20111226
  Transmission Date: 20120608
  Serious: Yes (Other)
  Sender: FDA-Public Use
  Company Number: JP-ASTELLAS-2011JP003712

PATIENT
  Sex: Female
  Weight: 72.5 kg

DRUGS (4)
  1. RINDERON-VG [Concomitant]
     Indication: DERMATITIS
     Dosage: UNK
     Route: 061
     Dates: end: 20111130
  2. PROTOPIC [Suspect]
     Indication: ERYTHEMA ANNULARE
     Dosage: 0.1 %, UNK
     Route: 061
     Dates: start: 20081203, end: 20110511
  3. CLINDAMYCIN PHOSPHATE [Concomitant]
     Indication: ACNE
     Dosage: UNK
     Route: 061
     Dates: end: 20111130
  4. KINDAVATE [Concomitant]
     Indication: ECZEMA
     Dosage: UNK
     Route: 061
     Dates: end: 20111130

REACTIONS (1)
  - MATERNAL EXPOSURE DURING PREGNANCY [None]
